FAERS Safety Report 5558459-2 (Version None)
Quarter: 2007Q4

REPORT INFORMATION
  Report Type: 
  Country: None (occurrence: None)
  Receive Date: 20071130
  Receipt Date: 20070831
  Transmission Date: 20080405
  Serious: No
  Sender: FDA-Public Use
  Company Number: US200709000310

PATIENT
  Age: 80 Year
  Sex: Female

DRUGS (4)
  1. BYETTA [Suspect]
     Indication: DIABETES MELLITUS
     Dosage: SUBCUTANEOUS
     Route: 058
     Dates: start: 20070528
  2. TOPROL-XL [Concomitant]
  3. AGGRENOX [Concomitant]
  4. COZAAR [Concomitant]

REACTIONS (1)
  - BLOOD GLUCOSE INCREASED [None]
